FAERS Safety Report 8440696-0 (Version None)
Quarter: 2012Q2

REPORT INFORMATION
  Report Type: 
  Country: None (occurrence: None)
  Receive Date: 20120615
  Receipt Date: 20120606
  Transmission Date: 20120825
  Serious: Yes (Life-Threatening, Hospitalization)
  Sender: FDA-Public Use
  Company Number: US-JNJFOC-20100404265

PATIENT
  Sex: Male
  Weight: 47.8 kg

DRUGS (33)
  1. INFLIXIMAB [Suspect]
     Indication: CROHN'S DISEASE
     Route: 042
     Dates: start: 20090429, end: 20090429
  2. COTRIM [Concomitant]
  3. CHLORHEXIDINE GLUCONATE [Concomitant]
  4. AUGMENTIN '125' [Concomitant]
  5. HUMIRA [Suspect]
     Dates: start: 20091116
  6. CYTARABINE [Concomitant]
  7. OXYCODONE HCL [Concomitant]
  8. ANTIBIOTICS [Concomitant]
     Indication: INFLAMMATORY BOWEL DISEASE
  9. SCOPOLAMINE [Concomitant]
  10. ZOFRAN [Concomitant]
  11. ALUMINUM HYDROXIDE [Concomitant]
  12. PEPTAMEN [Concomitant]
  13. IMODIUM [Concomitant]
  14. MORPHINE [Concomitant]
  15. ZOSYN [Concomitant]
  16. INFLIXIMAB [Suspect]
     Dosage: PRIOR TO REGISTRY
     Route: 042
     Dates: start: 20051103
  17. METHOTREXATE [Suspect]
     Indication: CROHN'S DISEASE
  18. CHOLECALCIFEROL [Concomitant]
  19. MIRALAX [Concomitant]
  20. FLUCONAZOLE [Concomitant]
  21. HUMIRA [Suspect]
     Indication: CROHN'S DISEASE
     Dates: start: 20090512
  22. PREDNISONE TAB [Suspect]
     Indication: CROHN'S DISEASE
  23. RIFAXIMIN [Concomitant]
  24. VANCOMYCIN [Concomitant]
  25. ATIVAN [Concomitant]
  26. BENADRYL [Concomitant]
  27. IRON [Concomitant]
  28. LEUCOVORIN CALCIUM [Concomitant]
  29. ZANTAC [Concomitant]
  30. NALBUPHINE [Concomitant]
  31. HUMIRA [Suspect]
     Dates: start: 20100331, end: 20100331
  32. CALCIUM CARBONATE [Concomitant]
  33. OMEPRAZOLE [Concomitant]

REACTIONS (5)
  - SEPTIC SHOCK [None]
  - MYELOID LEUKAEMIA [None]
  - TRANSFUSION REACTION [None]
  - ACUTE MONOCYTIC LEUKAEMIA [None]
  - MULTI-ORGAN FAILURE [None]
